FAERS Safety Report 5506355-9 (Version None)
Quarter: 2007Q4

REPORT INFORMATION
  Report Type: 
  Country: None (occurrence: None)
  Receive Date: 20071101
  Receipt Date: 20071018
  Transmission Date: 20080405
  Serious: Yes (Death)
  Sender: FDA-Public Use
  Company Number: 2007002001

PATIENT
  Age: 65 Year
  Sex: 0

DRUGS (3)
  1. ERLOTINIB [Suspect]
     Indication: LUNG NEOPLASM MALIGNANT
     Dosage: 150 MG, QD, ORAL
     Route: 048
     Dates: start: 20061023, end: 20061116
  2. SYMBICORT          (SYMBICORT) [Concomitant]
  3. HYOSCINE HBR HYT [Concomitant]

REACTIONS (1)
  - DIARRHOEA [None]
